FAERS Safety Report 17975323 (Version 1)
Quarter: 2020Q3

REPORT INFORMATION
  Report Type: Report from Study
  Country: IT (occurrence: IT)
  Receive Date: 20200702
  Receipt Date: 20200702
  Transmission Date: 20201104
  Serious: Yes (Disabling, Other)
  Sender: FDA-Public Use
  Company Number: IT-TEVA-2020-IT-1797185

PATIENT
  Age: 79 Year
  Sex: Female

DRUGS (6)
  1. ESOMEPRAZOLE. [Concomitant]
     Active Substance: ESOMEPRAZOLE MAGNESIUM
     Indication: PRODUCT USED FOR UNKNOWN INDICATION
     Route: 065
  2. RITUXIMAB. [Suspect]
     Active Substance: RITUXIMAB
     Indication: NON-HODGKIN^S LYMPHOMA
     Route: 065
     Dates: start: 20200406, end: 20200406
  3. POLATUZUMAB VEDOTIN. [Suspect]
     Active Substance: POLATUZUMAB VEDOTIN
     Indication: NON-HODGKIN^S LYMPHOMA
     Route: 065
     Dates: start: 20200406, end: 20200406
  4. BENDAMUSTINE HYDROCHLORIDE. [Suspect]
     Active Substance: BENDAMUSTINE HYDROCHLORIDE
     Indication: NON-HODGKIN^S LYMPHOMA
     Dosage: 140 MILLIGRAM DAILY; 140 MG, ONCE DAILY (CYCLIC)
     Route: 042
     Dates: start: 20200406, end: 20200407
  5. BACTRIM [Concomitant]
     Active Substance: SULFAMETHOXAZOLE\TRIMETHOPRIM
     Indication: PRODUCT USED FOR UNKNOWN INDICATION
     Dosage: 1 DF [1 TABLET X 2 (1 CPX2)], 0.5 WEEKS
     Route: 065
     Dates: start: 20200210
  6. ACICLOVIR [Concomitant]
     Active Substance: ACYCLOVIR
     Indication: ANTIVIRAL PROPHYLAXIS
     Dosage: 2 DOSAGE FORMS DAILY;
     Route: 065
     Dates: start: 20200210

REACTIONS (2)
  - Neuropathy peripheral [Not Recovered/Not Resolved]
  - Product use issue [Unknown]

NARRATIVE: CASE EVENT DATE: 20200406
